FAERS Safety Report 14091600 (Version 1)
Quarter: 2017Q4

REPORT INFORMATION
  Report Type: Spontaneous
  Country: US (occurrence: None)
  Receive Date: 20171013
  Receipt Date: 20171013
  Transmission Date: 20180321
  Serious: Yes (Death)
  Sender: FDA-Public Use
  Company Number: None

PATIENT
  Age: 88 Year
  Sex: Female

DRUGS (7)
  1. SYNTHROID [Concomitant]
     Active Substance: LEVOTHYROXINE SODIUM
  2. WARFARIN [Concomitant]
     Active Substance: WARFARIN
  3. LISINOPRIL. [Concomitant]
     Active Substance: LISINOPRIL
  4. TRAVATAN [Concomitant]
     Active Substance: TRAVOPROST
  5. VITAMIN D [Concomitant]
     Active Substance: CHOLECALCIFEROL
  6. VOLTAREN [Concomitant]
     Active Substance: DICLOFENAC SODIUM
  7. LUCENTIS [Suspect]
     Active Substance: RANIBIZUMAB
     Dosage: DOSE - 5MG/0.5ML?FREQUENCY - Q 28 D?ROUTE - DROPPS
     Dates: start: 20141016, end: 20170821

REACTIONS (1)
  - Death [None]

NARRATIVE: CASE EVENT DATE: 20170821
